FAERS Safety Report 5780074-6 (Version None)
Quarter: 2008Q2

REPORT INFORMATION
  Report Type: 
  Country: None (occurrence: None)
  Receive Date: 20080620
  Receipt Date: 20080616
  Transmission Date: 20081010
  Serious: Yes (Hospitalization)
  Sender: FDA-Public Use
  Company Number: ES-AVENTIS-200815650GDDC

PATIENT
  Age: 64 Year
  Sex: Female
  Weight: 90 kg

DRUGS (6)
  1. LANTUS [Suspect]
     Route: 058
     Dates: start: 20060405
  2. METFORMIN HCL [Concomitant]
     Dates: start: 20010101
  3. MINODIAB [Concomitant]
  4. ACETENSIL [Concomitant]
  5. SIMVASTATIN [Concomitant]
  6. VENOSMIL                           /01246301/ [Concomitant]

REACTIONS (1)
  - HUMERUS FRACTURE [None]
